FAERS Safety Report 7602885-4 (Version None)
Quarter: 2011Q2

REPORT INFORMATION
  Report Type: 
  Country: None (occurrence: None)
  Receive Date: 20110630
  Receipt Date: 20110621
  Transmission Date: 20111010
  Serious: Yes (Hospitalization)
  Sender: FDA-Public Use
  Company Number: VISP-NO-1106S-0235

PATIENT
  Age: 70 Year
  Sex: Female

DRUGS (3)
  1. VISIPAQUE [Suspect]
     Indication: PRODUCT USED FOR UNKNOWN INDICATION
     Dosage: 200 ML, SINGLE DOSE, INTRA-ARTERIAL
     Route: 013
     Dates: start: 20110603, end: 20110603
  2. MIDAZ (MIDAZOLAM HYDROCHLORIDE) [Concomitant]
  3. SUPACEF (CEFUROXIME SODIUM) [Concomitant]

REACTIONS (2)
  - INFUSION RELATED REACTION [None]
  - CHILLS [None]
